FAERS Safety Report 4732269-8 (Version None)
Quarter: 2005Q3

REPORT INFORMATION
  Report Type: 
  Country: None (occurrence: None)
  Receive Date: 20050801
  Receipt Date: 20050721
  Transmission Date: 20060218
  Serious: Yes (Hospitalization)
  Sender: FDA-Public Use
  Company Number: 2005-07-1470

PATIENT
  Sex: Male

DRUGS (2)
  1. PEG-INTRON [Suspect]
     Indication: HEPATITIS C
     Dosage: 100 MCG QW SUBCUTANEOUS
     Route: 058
     Dates: start: 20050120, end: 20050701
  2. REBETOL [Suspect]
     Indication: HEPATITIS C
     Dosage: 600 MG ORAL
     Route: 048
     Dates: start: 20050120, end: 20050701

REACTIONS (6)
  - INCORRECT DOSE ADMINISTERED [None]
  - MYALGIA [None]
  - OVERDOSE [None]
  - PLATELET COUNT DECREASED [None]
  - TREMOR [None]
  - WEIGHT DECREASED [None]
